FAERS Safety Report 12930518 (Version 1)
Quarter: 2016Q4

REPORT INFORMATION
  Report Type: Spontaneous
  Country: US (occurrence: US)
  Receive Date: 20161111
  Receipt Date: 20161111
  Transmission Date: 20170207
  Serious: Yes (Hospitalization)
  Sender: FDA-Public Use
  Company Number: None

PATIENT
  Age: 88 Year
  Sex: Female
  Weight: 56.8 kg

DRUGS (1)
  1. MEMANTINE HYDROCHLORIDE. [Suspect]
     Active Substance: MEMANTINE HYDROCHLORIDE
     Dates: end: 20161011

REACTIONS (9)
  - Malaise [None]
  - Neck pain [None]
  - Fatigue [None]
  - Back pain [None]
  - Constipation [None]
  - Dysuria [None]
  - Metastatic neoplasm [None]
  - Urinary retention [None]
  - Hypovolaemia [None]

NARRATIVE: CASE EVENT DATE: 20161017
